FAERS Safety Report 13643885 (Version 1)
Quarter: 2017Q2

REPORT INFORMATION
  Report Type: Spontaneous
  Country: FR (occurrence: FR)
  Receive Date: 20170612
  Receipt Date: 20170612
  Transmission Date: 20170830
  Serious: Yes (Other)
  Sender: FDA-Public Use
  Company Number: FR-BAYER-2017-108065

PATIENT
  Age: 35 Year
  Sex: Female

DRUGS (1)
  1. MIRENA [Suspect]
     Active Substance: LEVONORGESTREL
     Indication: CONTRACEPTION
     Dosage: 20 MCG/24HR, CONT
     Route: 015
     Dates: start: 20100212

REACTIONS (7)
  - Headache [Unknown]
  - Subdural haematoma [Unknown]
  - Uterine leiomyoma [Unknown]
  - Depression [Unknown]
  - Pigmentation disorder [Unknown]
  - Hypertrichosis [Unknown]
  - Weight increased [Unknown]

NARRATIVE: CASE EVENT DATE: 201008
